FAERS Safety Report 4406724-4 (Version None)
Quarter: 2004Q3

REPORT INFORMATION
  Report Type: 
  Country: None (occurrence: None)
  Receive Date: 20040715
  Receipt Date: 20040706
  Transmission Date: 20050211
  Serious: Yes (Death)
  Sender: FDA-Public Use
  Company Number: 04H-114-0266336-00

PATIENT
  Sex: 0

DRUGS (3)
  1. HEPARIN SODIUM [Suspect]
     Indication: PHLEBOTHROMBOSIS
     Dosage: 28.800 +-2.800 IU/24 HOUR, CONTINUOUS INFUSION IN 1993-1994
     Dates: start: 19930101
  2. HEPARIN SODIUM [Suspect]
     Indication: PHLEBOTHROMBOSIS
     Dosage: 5400+-900 IU, BOLUS DOSE X1 , ONE TIME BOLUS 1993-1994
     Dates: start: 19930101
  3. WARFARIN SODIUM [Concomitant]

REACTIONS (1)
  - PULMONARY EMBOLISM [None]
